FAERS Safety Report 25271004 (Version 1)
Quarter: 2025Q2

REPORT INFORMATION
  Report Type: Report from Study
  Country: CA (occurrence: CA)
  Receive Date: 20250506
  Receipt Date: 20250506
  Transmission Date: 20250716
  Serious: Yes (Hospitalization, Other)
  Sender: TAKEDA
  Company Number: CA-TAKEDA-2025TUS003498

PATIENT
  Age: 48 Year
  Sex: Female

DRUGS (11)
  1. GLASSIA [Suspect]
     Active Substance: .ALPHA.1-PROTEINASE INHIBITOR HUMAN
     Indication: Alpha-1 antitrypsin deficiency
     Dosage: 4200 MILLIGRAM, 1/WEEK
     Dates: start: 20241231
  2. GLASSIA [Suspect]
     Active Substance: .ALPHA.1-PROTEINASE INHIBITOR HUMAN
     Dosage: 4200 MILLIGRAM, 1/WEEK
  3. GLASSIA [Suspect]
     Active Substance: .ALPHA.1-PROTEINASE INHIBITOR HUMAN
     Dosage: 4200 MILLIGRAM, 1/WEEK
  4. GLASSIA [Suspect]
     Active Substance: .ALPHA.1-PROTEINASE INHIBITOR HUMAN
     Dosage: UNK UNK, 1/WEEK
  5. GLASSIA [Suspect]
     Active Substance: .ALPHA.1-PROTEINASE INHIBITOR HUMAN
     Dosage: 4200 MILLIGRAM, 1/WEEK
  6. ALBUTEROL [Concomitant]
     Active Substance: ALBUTEROL
  7. PROLASTIN [Concomitant]
     Active Substance: .ALPHA.1-PROTEINASE INHIBITOR HUMAN
  8. TRELEGY ELLIPTA [Concomitant]
     Active Substance: FLUTICASONE FUROATE\UMECLIDINIUM BROMIDE\VILANTEROL TRIFENATATE
  9. BASAGLAR [Concomitant]
     Active Substance: INSULIN GLARGINE
  10. INSULIN ASPART [Concomitant]
     Active Substance: INSULIN ASPART
  11. INSULIN NOS [Concomitant]
     Active Substance: INSULIN NOS

REACTIONS (10)
  - Pneumonia [Unknown]
  - Diabetic ketoacidosis [Unknown]
  - Hypersomnia [Unknown]
  - Malaise [Unknown]
  - Blood pressure fluctuation [Unknown]
  - Illness [Not Recovered/Not Resolved]
  - Inappropriate schedule of product administration [Unknown]
  - Body temperature decreased [Unknown]
  - Heart rate irregular [Unknown]
  - Blood pressure increased [Unknown]

NARRATIVE: CASE EVENT DATE: 20250107
